FAERS Safety Report 7583951-9 (Version None)
Quarter: 2011Q2

REPORT INFORMATION
  Report Type: 
  Country: None (occurrence: None)
  Receive Date: 20110531
  Receipt Date: 20101118
  Transmission Date: 20111010
  Serious: Yes (Other)
  Sender: FDA-Public Use
  Company Number: 318840

PATIENT
  Age: 60 Year
  Sex: Female
  Weight: 86.2 kg

DRUGS (25)
  1. FOLIC ACID [Concomitant]
  2. VAGIFEM [Suspect]
     Indication: HORMONE REPLACEMENT THERAPY
     Dosage: 25 UG
     Dates: start: 20030627, end: 20041001
  3. VAGIFEM [Suspect]
     Indication: MENOPAUSE
     Dosage: 25 UG
     Dates: start: 20030627, end: 20041001
  4. HYDROCHLOROTHIAZIDE [Concomitant]
  5. SYNTHROID [Concomitant]
  6. VITAMIN B12 [Concomitant]
  7. BUTALBITAL ACETAMINOPHEN AND CAFFEINE [Concomitant]
  8. TRAMADOL HCL [Concomitant]
  9. IRON (IRON) [Concomitant]
  10. VERAPAMIL [Concomitant]
  11. ZEGERID /00661201/ (OMEPRAZOLE) [Concomitant]
  12. CELEBREX [Concomitant]
  13. ACTONEL [Concomitant]
  14. PREMPRO [Suspect]
     Indication: MENOPAUSE
     Dosage: 2.5/0.625 MG + 0.45/1.5 MG
     Dates: start: 20010101, end: 20061208
  15. PREMPRO [Suspect]
     Indication: HORMONE REPLACEMENT THERAPY
     Dosage: 2.5/0.625 MG + 0.45/1.5 MG
     Dates: start: 20010101, end: 20061208
  16. PREMPRO [Suspect]
     Indication: MENOPAUSE
     Dosage: 2.5/0.625 MG + 0.45/1.5 MG
     Dates: start: 19950101, end: 20011001
  17. PREMPRO [Suspect]
     Indication: HORMONE REPLACEMENT THERAPY
     Dosage: 2.5/0.625 MG + 0.45/1.5 MG
     Dates: start: 19950101, end: 20011001
  18. PENTASA [Concomitant]
  19. XANAX [Concomitant]
  20. CRESTOR [Concomitant]
  21. WELLBUTRIN [Concomitant]
  22. CALCIUM (CALCIUM) [Concomitant]
  23. ASPIRIN [Concomitant]
  24. OXYCODONE HCL [Concomitant]
  25. CELEXA [Concomitant]

REACTIONS (1)
  - BREAST CANCER [None]
